FAERS Safety Report 22395526 (Version 1)
Quarter: 2023Q2

REPORT INFORMATION
  Report Type: Spontaneous
  Country: CN (occurrence: CN)
  Receive Date: 20230601
  Receipt Date: 20230601
  Transmission Date: 20230721
  Serious: Yes (Life-Threatening, Other)
  Sender: FDA-Public Use
  Company Number: CN-009507513-2305CHN008652

PATIENT
  Age: 75 Year
  Sex: Male
  Weight: 80 kg

DRUGS (2)
  1. CILASTATIN SODIUM\IMIPENEM [Suspect]
     Active Substance: CILASTATIN SODIUM\IMIPENEM
     Indication: Pneumonia
     Dosage: 0.5G, Q6H
     Route: 041
     Dates: start: 20230504, end: 20230505
  2. SODIUM CHLORIDE [Concomitant]
     Active Substance: SODIUM CHLORIDE
     Indication: Medication dilution
     Dosage: 100ML, Q6H
     Route: 041
     Dates: start: 20230504, end: 20230505

REACTIONS (3)
  - Seizure [Recovered/Resolved]
  - Cyanosis [Recovered/Resolved]
  - Oxygen saturation immeasurable [Recovered/Resolved]

NARRATIVE: CASE EVENT DATE: 20230506
